FAERS Safety Report 16267223 (Version 3)
Quarter: 2019Q2

REPORT INFORMATION
  Report Type: Report from Study
  Country: PA (occurrence: PA)
  Receive Date: 20190502
  Receipt Date: 20190522
  Transmission Date: 20190711
  Serious: Yes (Hospitalization, Other)
  Sender: FDA-Public Use
  Company Number: PHHY2018PA186389

PATIENT
  Sex: Female
  Weight: 117.46 kg

DRUGS (16)
  1. AMLODIPINE [Suspect]
     Active Substance: AMLODIPINE BESYLATE
     Indication: LEFT VENTRICULAR HYPERTROPHY
     Dosage: UNK
     Route: 065
  2. SALBUTEROL [Concomitant]
     Indication: PRODUCT USED FOR UNKNOWN INDICATION
     Dosage: UNK
     Route: 065
  3. METFORMIN [Concomitant]
     Active Substance: METFORMIN HYDROCHLORIDE
     Indication: HORMONE LEVEL ABNORMAL
     Dosage: UNK
     Route: 065
     Dates: start: 2018
  4. LISINOPRIL. [Concomitant]
     Active Substance: LISINOPRIL
     Indication: HYPERTENSION
     Dosage: 1 DF, QD
     Route: 065
  5. PULMICORT TURBUHALER [Concomitant]
     Active Substance: BUDESONIDE
     Indication: ASTHMA
     Dosage: UNK
     Route: 065
  6. MONTELUKAST SODIUM. [Suspect]
     Active Substance: MONTELUKAST SODIUM
     Indication: PRODUCT USED FOR UNKNOWN INDICATION
     Dosage: UNK
     Route: 065
  7. XOLAIR [Suspect]
     Active Substance: OMALIZUMAB
     Dosage: 1 DF, UNK (EVERY 15 DAYS)
     Route: 065
  8. SPIRIVA [Concomitant]
     Active Substance: TIOTROPIUM BROMIDE MONOHYDRATE
     Indication: PRODUCT USED FOR UNKNOWN INDICATION
     Dosage: UNK
     Route: 065
  9. VENTOLIN [Concomitant]
     Active Substance: ALBUTEROL SULFATE
     Indication: ASTHMA
     Dosage: UNK
     Route: 065
     Dates: start: 2018
  10. XOLAIR [Suspect]
     Active Substance: OMALIZUMAB
     Indication: ASTHMATIC CRISIS
     Dosage: 4 DF, (EVERY 15 DAYS)
     Route: 065
     Dates: start: 201811
  11. XOLAIR [Suspect]
     Active Substance: OMALIZUMAB
     Dosage: UNK
     Route: 065
     Dates: start: 201901
  12. XOLAIR [Suspect]
     Active Substance: OMALIZUMAB
     Dosage: UNK
     Route: 065
     Dates: start: 20190426
  13. SALBUTAMOL [Concomitant]
     Active Substance: ALBUTEROL
     Indication: PRODUCT USED FOR UNKNOWN INDICATION
     Route: 065
  14. SANDOSTATIN LAR DEPOT [Suspect]
     Active Substance: OCTREOTIDE ACETATE
     Indication: ACROMEGALY
  15. SANDOSTATIN LAR DEPOT [Suspect]
     Active Substance: OCTREOTIDE ACETATE
     Indication: PITUITARY TUMOUR BENIGN
     Dosage: 1 DF, QMO
     Route: 065
     Dates: start: 2018
  16. SYMBICORT [Concomitant]
     Active Substance: BUDESONIDE\FORMOTEROL FUMARATE DIHYDRATE
     Indication: ASTHMA
     Dosage: UNK
     Route: 065

REACTIONS (24)
  - Overweight [Unknown]
  - Product use in unapproved indication [Unknown]
  - Drug ineffective [Unknown]
  - Condition aggravated [Recovered/Resolved]
  - Oxygen saturation decreased [Unknown]
  - Chills [Unknown]
  - Blood creatinine increased [Unknown]
  - Bronchial secretion retention [Recovered/Resolved]
  - Weight decreased [Unknown]
  - Asthma [Recovering/Resolving]
  - Wheezing [Not Recovered/Not Resolved]
  - Fungal infection [Unknown]
  - Hepatomegaly [Recovering/Resolving]
  - Cardiomegaly [Recovering/Resolving]
  - Asthmatic crisis [Recovering/Resolving]
  - Abdominal pain [Recovering/Resolving]
  - Respiratory tract congestion [Unknown]
  - Abdominal pain upper [Unknown]
  - Nasopharyngitis [Unknown]
  - Headache [Unknown]
  - Fatigue [Unknown]
  - Asthmatic crisis [Recovered/Resolved]
  - Malaise [Recovering/Resolving]
  - Renal disorder [Unknown]
